FAERS Safety Report 17184388 (Version 1)
Quarter: 2019Q4

REPORT INFORMATION
  Report Type: Spontaneous
  Country: US (occurrence: US)
  Receive Date: 20191127
  Receipt Date: 20191127
  Transmission Date: 20200122
  Serious: No
  Sender: FDA-Public Use
  Company Number: None

PATIENT
  Age: 62 Year
  Sex: Female

DRUGS (1)
  1. ADRUCIL [Suspect]
     Active Substance: FLUOROURACIL
     Dosage: VARIES OTHER INTREALESIONAL?DEC-2019
     Route: 026

REACTIONS (1)
  - Off label use [None]

NARRATIVE: CASE EVENT DATE: 20191127
